FAERS Safety Report 5443742-1 (Version None)
Quarter: 2007Q3

REPORT INFORMATION
  Report Type: 
  Country: None (occurrence: None)
  Receive Date: 20070905
  Receipt Date: 20070824
  Transmission Date: 20080115
  Serious: Yes (Other)
  Sender: FDA-Public Use
  Company Number: US-PFIZER INC-2007029587

PATIENT
  Sex: Female
  Weight: 58.1 kg

DRUGS (5)
  1. CHANTIX [Suspect]
     Indication: SMOKING CESSATION THERAPY
     Route: 048
     Dates: start: 20070404, end: 20070406
  2. ADVAIR DISKUS 100/50 [Interacting]
     Indication: ASTHMA
     Dates: start: 20070331, end: 20070406
  3. ALBUTEROL [Interacting]
     Indication: ASTHMA
     Dates: start: 20070331, end: 20070406
  4. PREDNISONE [Concomitant]
  5. IBANDRONATE SODIUM [Concomitant]
     Indication: OSTEOPOROSIS

REACTIONS (5)
  - ARTHRALGIA [None]
  - DRUG INTERACTION [None]
  - INSOMNIA [None]
  - MYALGIA [None]
  - PAIN [None]
